FAERS Safety Report 10958751 (Version 2)
Quarter: 2015Q2

REPORT INFORMATION
  Report Type: Spontaneous
  Country: JP (occurrence: JP)
  Receive Date: 20150326
  Receipt Date: 20150511
  Transmission Date: 20150821
  Serious: Yes (Hospitalization)
  Sender: FDA-Public Use
  Company Number: JP-AMGEN-JPNSP2014103097

PATIENT
  Age: 57 Year
  Sex: Male
  Weight: 56 kg

DRUGS (13)
  1. DOBUTAMINE [Concomitant]
     Active Substance: DOBUTAMINE\DOBUTAMINE HYDROCHLORIDE
     Indication: CARDIAC DISORDER
     Dosage: UNK
     Route: 041
     Dates: start: 20130304, end: 20130320
  2. HEPARIN SODIUM. [Concomitant]
     Active Substance: HEPARIN SODIUM
     Indication: THROMBOLYSIS
     Dosage: UNK
     Route: 041
     Dates: start: 20130304, end: 20130403
  3. PRECEDEX [Concomitant]
     Active Substance: DEXMEDETOMIDINE HYDROCHLORIDE
     Indication: SEDATION
     Dosage: UNK
     Route: 041
     Dates: start: 20130305, end: 20130410
  4. PLAVIX [Suspect]
     Active Substance: CLOPIDOGREL BISULFATE
     Indication: ANTIPLATELET THERAPY
     Dosage: 75 MG, QD
     Route: 048
     Dates: start: 20130304, end: 20130317
  5. SIGMART [Concomitant]
     Active Substance: NICORANDIL
     Indication: CORONARY ARTERY OCCLUSION
     Dosage: UNK
     Route: 041
     Dates: start: 20130304, end: 20130310
  6. LANTUS [Concomitant]
     Active Substance: INSULIN GLARGINE
     Indication: DIABETES MELLITUS MANAGEMENT
     Dosage: UNK, PRN
     Route: 058
     Dates: start: 20130304
  7. LIPITOR [Suspect]
     Active Substance: ATORVASTATIN CALCIUM
     Indication: HYPERCHOLESTEROLAEMIA
     Dosage: 10 MG, QD
     Route: 048
     Dates: start: 20130304, end: 20130314
  8. GRAN [Suspect]
     Active Substance: FILGRASTIM
     Indication: CARDIOPLEGIA
     Dosage: 300 MCG, QD
     Route: 042
     Dates: start: 20130304, end: 20130315
  9. NOREPINEPHRINE [Concomitant]
     Active Substance: NOREPINEPHRINE\NOREPINEPHRINE BITARTRATE
     Indication: BLOOD PRESSURE MANAGEMENT
     Dosage: UNK
     Route: 041
     Dates: start: 20130304, end: 20130408
  10. FENTANYL. [Concomitant]
     Active Substance: FENTANYL
     Indication: GENERAL ANAESTHESIA
     Dosage: UNK
     Route: 041
     Dates: start: 20130304, end: 20130410
  11. DORMICUM [Concomitant]
     Active Substance: MIDAZOLAM\MIDAZOLAM HYDROCHLORIDE
     Indication: GENERAL ANAESTHESIA
     Dosage: UNK
     Route: 041
     Dates: start: 20130304, end: 20130316
  12. ASPIRIN. [Concomitant]
     Active Substance: ASPIRIN
     Indication: ANTIPLATELET THERAPY
     Dosage: 0.1 G, QD
     Route: 048
     Dates: start: 20130304, end: 20130630
  13. PLAVIX [Suspect]
     Active Substance: CLOPIDOGREL BISULFATE
     Dosage: 25 MG, QD
     Route: 048
     Dates: start: 20130403

REACTIONS (1)
  - Rhabdomyolysis [Not Recovered/Not Resolved]

NARRATIVE: CASE EVENT DATE: 20130316
